FAERS Safety Report 6725864-8 (Version None)
Quarter: 2010Q2

REPORT INFORMATION
  Report Type: 
  Country: None (occurrence: None)
  Receive Date: 20100514
  Receipt Date: 20100512
  Transmission Date: 20101027
  Serious: Yes (Death)
  Sender: FDA-Public Use
  Company Number: PHHY2009CA58570

PATIENT
  Sex: Female

DRUGS (1)
  1. SANDOSTATIN LAR [Suspect]
     Indication: HEPATIC NEOPLASM
     Dosage: 30 MG, QMO
     Route: 030
     Dates: start: 20091119

REACTIONS (3)
  - DEATH [None]
  - DIZZINESS [None]
  - MUSCLE SPASMS [None]
